FAERS Safety Report 10935289 (Version 1)
Quarter: 2015Q1

REPORT INFORMATION
  Report Type: Spontaneous
  Country: US (occurrence: None)
  Receive Date: 20150129
  Receipt Date: 20150129
  Transmission Date: 20150721
  Serious: No
  Sender: FDA-Public Use
  Company Number: A-NJ2014-107149

PATIENT
  Age: 38 Year
  Sex: Female

DRUGS (2)
  1. OPSUMIT [Suspect]
     Active Substance: MACITENTAN
     Indication: COR PULMONALE CHRONIC
     Route: 048
     Dates: start: 20141013
  2. REVATIO (SILDENAFIL CITRATE) [Concomitant]

REACTIONS (3)
  - Headache [None]
  - Vulvovaginal discomfort [None]
  - Diarrhoea [None]
